FAERS Safety Report 5208350-6 (Version None)
Quarter: 2007Q1

REPORT INFORMATION
  Report Type: 
  Country: None (occurrence: None)
  Receive Date: 20070111
  Receipt Date: 20070111
  Transmission Date: 20070707
  Serious: Yes (Life-Threatening, Hospitalization, Other)
  Sender: FDA-Public Use
  Company Number: None

PATIENT
  Age: 34 Year
  Sex: Female
  Weight: 65.7716 kg

DRUGS (2)
  1. LARIAM [Suspect]
     Indication: MALARIA PROPHYLAXIS
     Dosage: 250 MG WEEKLY PO
     Route: 048
     Dates: start: 20041021, end: 20041111
  2. TRAVEL [Concomitant]

REACTIONS (22)
  - ANXIETY [None]
  - APHASIA [None]
  - BALANCE DISORDER [None]
  - BRAIN DAMAGE [None]
  - CHILLS [None]
  - COLD SWEAT [None]
  - CONVULSION [None]
  - DEPRESSION [None]
  - DISTURBANCE IN ATTENTION [None]
  - DIZZINESS [None]
  - FATIGUE [None]
  - FEELING HOT AND COLD [None]
  - HALLUCINATION [None]
  - HEADACHE [None]
  - IMPAIRED WORK ABILITY [None]
  - INSOMNIA [None]
  - NEUROTOXICITY [None]
  - PANIC ATTACK [None]
  - PSYCHIATRIC SYMPTOM [None]
  - PSYCHOTIC DISORDER [None]
  - SUICIDAL IDEATION [None]
  - VESTIBULAR NEURONITIS [None]
